FAERS Safety Report 17228792 (Version 1)
Quarter: 2020Q1

REPORT INFORMATION
  Report Type: Spontaneous
  Country: FR (occurrence: FR)
  Receive Date: 20200103
  Receipt Date: 20200103
  Transmission Date: 20200409
  Serious: Yes (Other)
  Sender: FDA-Public Use
  Company Number: FR-SA-2019SA325453

PATIENT
  Age: 46 Year
  Sex: Female

DRUGS (8)
  1. ASPEGIC (ACETYLSALICYLATE LYSINE) [Suspect]
     Active Substance: ASPIRIN DL-LYSINE
  2. GESTARELLE G [Suspect]
     Active Substance: DIETARY SUPPLEMENT
  3. PLAQUENIL [Suspect]
     Active Substance: HYDROXYCHLOROQUINE SULFATE
     Dosage: 1 DF, QD
     Dates: start: 201908
  4. PENTOXIFYLLINE. [Suspect]
     Active Substance: PENTOXIFYLLINE
     Dosage: 1 DF, QD
     Dates: start: 201908
  5. LOVENOX [Suspect]
     Active Substance: ENOXAPARIN SODIUM
  6. KARDEGIC [Suspect]
     Active Substance: ASPIRIN DL-LYSINE
  7. PREDNISONE. [Suspect]
     Active Substance: PREDNISONE
     Dosage: 1 DF, QD
  8. DOLIPRANE [Suspect]
     Active Substance: ACETAMINOPHEN

REACTIONS (2)
  - Abortion spontaneous [Unknown]
  - Exposure during pregnancy [Unknown]
